FAERS Safety Report 18206283 (Version 7)
Quarter: 2021Q2

REPORT INFORMATION
  Report Type: Report from Study
  Country: US (occurrence: US)
  Receive Date: 20200828
  Receipt Date: 20210625
  Transmission Date: 20210717
  Serious: Yes (Hospitalization, Other)
  Sender: FDA-Public Use
  Company Number: US-BIOVITRUM-2020US4602

PATIENT
  Sex: Female

DRUGS (2)
  1. KINERET [Suspect]
     Active Substance: ANAKINRA
     Route: 058
     Dates: start: 20190815
  2. KINERET [Suspect]
     Active Substance: ANAKINRA
     Indication: RHEUMATOID ARTHRITIS
     Route: 058
     Dates: start: 20190816

REACTIONS (14)
  - Pruritus [Recovering/Resolving]
  - Thyroid disorder [Not Recovered/Not Resolved]
  - Infection [Unknown]
  - Abnormal loss of weight [Unknown]
  - Impaired gastric emptying [Unknown]
  - Neck mass [Unknown]
  - Injection site reaction [Unknown]
  - Dehydration [Unknown]
  - Computerised tomogram abnormal [Unknown]
  - Sinusitis [Unknown]
  - Fatigue [Unknown]
  - Functional gastrointestinal disorder [Unknown]
  - Dysphagia [Unknown]
  - Product dose omission issue [Unknown]
